FAERS Safety Report 15434735 (Version 7)
Quarter: 2019Q1

REPORT INFORMATION
  Report Type: Report from Study
  Country: IL (occurrence: IL)
  Receive Date: 20180927
  Receipt Date: 20190122
  Transmission Date: 20190417
  Serious: Yes (Hospitalization, Other)
  Sender: FDA-Public Use
  Company Number: IL-IPSEN BIOPHARMACEUTICALS, INC.-2018-14694

PATIENT
  Age: 60 Year
  Sex: Male
  Weight: 114 kg

DRUGS (29)
  1. CLEXANE [Concomitant]
     Active Substance: ENOXAPARIN SODIUM
     Route: 058
  2. SOMATULINE AUTOGEL 120MG [Suspect]
     Active Substance: LANREOTIDE ACETATE
     Dosage: NOT REPORTED
     Dates: start: 20181108
  3. AMARYL [Concomitant]
     Active Substance: GLIMEPIRIDE
  4. ASACOL [Concomitant]
     Active Substance: MESALAMINE
     Dosage: REGULAR TREATMENT
  5. CIPRAMIL [CITALOPRAM HYDROBROMIDE] [Concomitant]
     Active Substance: CITALOPRAM HYDROBROMIDE
     Route: 048
  6. RECLAST [Concomitant]
     Active Substance: ZOLEDRONIC ACID
     Route: 042
  7. RESPRIM FORTE [Concomitant]
     Active Substance: SULFAMETHOXAZOLE\TRIMETHOPRIM
     Dosage: X 2 WEEK - 1 TABLET
  8. CLEXANE [Concomitant]
     Active Substance: ENOXAPARIN SODIUM
  9. SOMATULINE AUTOGEL 120MG [Suspect]
     Active Substance: LANREOTIDE ACETATE
     Dosage: 120 MILLIGRAM
     Route: 058
     Dates: start: 20181007
  10. COLECALCIFEROL [Concomitant]
     Active Substance: CHOLECALCIFEROL
  11. SERETIDE [Concomitant]
     Active Substance: FLUTICASONE PROPIONATE\SALMETEROL XINAFOATE
     Route: 055
  12. URSOLIT [Concomitant]
     Route: 048
  13. RECLAST [Concomitant]
     Active Substance: ZOLEDRONIC ACID
     Route: 042
  14. CALTRATE WITH VITAMIN D [Concomitant]
     Active Substance: CALCIUM CARBONATE\CHOLECALCIFEROL
  15. FUSID [Concomitant]
     Dosage: THERE IS AN INTERMEDIATE RISK OF FALLS IN ADULTS
  16. IMURAN [Suspect]
     Active Substance: AZATHIOPRINE
     Indication: INFLAMMATORY BOWEL DISEASE
  17. SUTENT [Suspect]
     Active Substance: SUNITINIB MALATE
     Indication: METASTASES TO BONE
  18. MICROPIRIN [Concomitant]
     Active Substance: ASPIRIN
     Route: 048
  19. CARDILOC [Concomitant]
     Active Substance: BISOPROLOL FUMARATE
     Dosage: THERE IS A HIGH RISK OF FALLS IN ADULTS.
  20. PREDNISONE. [Concomitant]
     Active Substance: PREDNISONE
  21. URSOLIT [Concomitant]
  22. CALTRATE 600 AND VITAMIN D [Concomitant]
     Dosage: 1 UNIT
  23. SOMATULINE AUTOGEL 120MG [Suspect]
     Active Substance: LANREOTIDE ACETATE
     Dosage: NOT REPORTED
     Dates: start: 20181021
  24. GLUCOMIN [Concomitant]
     Active Substance: METFORMIN HYDROCHLORIDE
  25. RAFASSAL [Concomitant]
     Dosage: CPL
  26. SOMATULINE AUTOGEL 120MG [Suspect]
     Active Substance: LANREOTIDE ACETATE
     Indication: NEUROENDOCRINE TUMOUR
     Dosage: 120 MG
     Route: 058
     Dates: start: 20110829, end: 2017
  27. SOMATULINE AUTOGEL 120MG [Suspect]
     Active Substance: LANREOTIDE ACETATE
     Dosage: 120 MG
     Route: 058
     Dates: start: 2017
  28. SUTENT [Suspect]
     Active Substance: SUNITINIB MALATE
     Indication: METASTASES TO LIVER
  29. LOSEC [Concomitant]
     Active Substance: OMEPRAZOLE
     Route: 048

REACTIONS (24)
  - Weight decreased [Unknown]
  - Weight increased [Unknown]
  - Metastases to the mediastinum [Unknown]
  - Atelectasis [Unknown]
  - Inappropriate schedule of product administration [Unknown]
  - Cholelithiasis [Recovered/Resolved]
  - Meningioma [Unknown]
  - Lung disorder [Unknown]
  - Stent placement [Unknown]
  - Metastases to liver [Unknown]
  - Cerebral disorder [Unknown]
  - Gynaecomastia [Unknown]
  - Tricuspid valve incompetence [Unknown]
  - Metastases to bone [Unknown]
  - Muscular weakness [Unknown]
  - Transurethral prostatectomy [Unknown]
  - Mitral valve incompetence [Unknown]
  - Cardiac ventricular thrombosis [Unknown]
  - Asthenia [Unknown]
  - Diabetes mellitus inadequate control [Unknown]
  - Colitis ulcerative [Not Recovered/Not Resolved]
  - Malignant melanoma [Unknown]
  - General physical health deterioration [Unknown]
  - Leukopenia [Unknown]

NARRATIVE: CASE EVENT DATE: 20111228
